FAERS Safety Report 9787621 (Version 1)
Quarter: 2013Q4

REPORT INFORMATION
  Report Type: Spontaneous
  Country: SZ (occurrence: None)
  Receive Date: 20131226
  Receipt Date: 20131226
  Transmission Date: 20140711
  Serious: Yes (Congenital Anomaly, Other)
  Sender: FDA-Public Use
  Company Number: AXC-2013-000669

PATIENT
  Age: 1 Day
  Sex: Male
  Weight: 3.2 kg

DRUGS (7)
  1. URSODEOXYCHOLIC ACID [Suspect]
     Indication: FOETAL EXPOSURE DURING PREGNANCY
     Route: 064
  2. ELTROXIN [Suspect]
     Indication: FOETAL EXPOSURE DURING PREGNANCY
     Route: 064
  3. BUSCOPAN [Suspect]
     Indication: FOETAL EXPOSURE DURING PREGNANCY
     Dosage: UNK, TRANSPLACENTAL
     Route: 064
     Dates: start: 20130510
  4. FRAGMIN [Suspect]
     Indication: FOETAL EXPOSURE DURING PREGNANCY
     Dosage: 5000 USP, QD, TRANSPLACENTAL
     Route: 064
     Dates: start: 20130607, end: 20130609
  5. MAGNESIOCARD [Suspect]
     Indication: FOETAL EXPOSURE DURING PREGNANCY
     Route: 064
     Dates: start: 20130610
  6. ADALAT CR [Suspect]
     Indication: FOETAL EXPOSURE DURING PREGNANCY
     Route: 064
     Dates: start: 20130607, end: 20130610
  7. GYNO-TARDYFERON (ASCORBIC ACID, FERROUS SULFATE, FOLIC ACID, PROTEASE) UNKNOWN [Concomitant]

REACTIONS (4)
  - Congenital foot malformation [None]
  - ABO incompatibility [None]
  - Foetal exposure during pregnancy [None]
  - Caesarean section [None]
